FAERS Safety Report 15507342 (Version 1)
Quarter: 2018Q4

REPORT INFORMATION
  Report Type: Spontaneous
  Country: US (occurrence: US)
  Receive Date: 20181016
  Receipt Date: 20181016
  Transmission Date: 20190205
  Serious: Yes (Hospitalization, Other)
  Sender: FDA-Public Use
  Company Number: US-AKORN PHARMACEUTICALS-2018AKN01451

PATIENT
  Sex: Male
  Weight: 67.12 kg

DRUGS (2)
  1. MYORISAN [Suspect]
     Active Substance: ISOTRETINOIN
     Indication: ACNE CONGLOBATA
     Dosage: 30 MG, 2X/DAY
     Dates: start: 20180410, end: 20180913
  2. MYORISAN [Suspect]
     Active Substance: ISOTRETINOIN
     Indication: ACNE CONGLOBATA
     Dosage: 40 MG, 2X/DAY
     Route: 048
     Dates: start: 20180612, end: 20180913

REACTIONS (7)
  - Suicide attempt [Unknown]
  - Cough [Unknown]
  - Anger [Unknown]
  - Loss of consciousness [Unknown]
  - Road traffic accident [Unknown]
  - Abnormal behaviour [Unknown]
  - Aggression [Unknown]

NARRATIVE: CASE EVENT DATE: 2018
